FAERS Safety Report 14774045 (Version 2)
Quarter: 2018Q2

REPORT INFORMATION
  Report Type: Spontaneous
  Country: US (occurrence: US)
  Receive Date: 20180418
  Receipt Date: 20180501
  Transmission Date: 20180711
  Serious: Yes (Other)
  Sender: FDA-Public Use
  Company Number: US-AKORN PHARMACEUTICALS-2018AKN00475

PATIENT
  Age: 17 Year
  Sex: Female
  Weight: 74.83 kg

DRUGS (3)
  1. CITALOPRAM [Concomitant]
     Active Substance: CITALOPRAM HYDROBROMIDE
     Dosage: 20 MG, 1X/DAY
  2. NEXPLANON [Concomitant]
     Active Substance: ETONOGESTREL
  3. MYORISAN [Suspect]
     Active Substance: ISOTRETINOIN
     Dosage: 30 MG, 1X/DAY
     Route: 048
     Dates: start: 20180312, end: 20180328

REACTIONS (5)
  - Mood altered [Recovered/Resolved]
  - Crying [Recovered/Resolved]
  - Off label use [Recovered/Resolved]
  - Affect lability [Recovered/Resolved]
  - Mood swings [Recovered/Resolved]

NARRATIVE: CASE EVENT DATE: 2018
